FAERS Safety Report 9282549 (Version 1)
Quarter: 2013Q2

REPORT INFORMATION
  Report Type: Spontaneous
  Country: US (occurrence: US)
  Receive Date: 20130510
  Receipt Date: 20130510
  Transmission Date: 20140414
  Serious: Yes (Other)
  Sender: FDA-Public Use
  Company Number: PHHY2013US046036

PATIENT
  Age: 86 Year
  Sex: Female

DRUGS (3)
  1. BUFFERIN [Suspect]
     Route: 048
  2. ACETYLSALICYLIC ACID [Suspect]
  3. PRAMIN [Concomitant]

REACTIONS (5)
  - Uterine cancer [Recovered/Resolved]
  - Hypersensitivity [Unknown]
  - Rash [Unknown]
  - Nasal congestion [Unknown]
  - Feeling abnormal [Unknown]
